FAERS Safety Report 24262622 (Version 1)
Quarter: 2024Q3

REPORT INFORMATION
  Report Type: Spontaneous
  Country: US (occurrence: None)
  Receive Date: 20240827
  Receipt Date: 20240827
  Transmission Date: 20241016
  Serious: No
  Sender: Public
  Company Number: None

PATIENT

DRUGS (1)
  1. NALOXONE [Suspect]
     Active Substance: NALOXONE
     Dosage: FREQUENCY : TWICE A DAY;?
     Route: 048
     Dates: start: 20240805

REACTIONS (1)
  - Vomiting [None]
